FAERS Safety Report 5166317-0 (Version None)
Quarter: 2006Q4

REPORT INFORMATION
  Report Type: 
  Country: None (occurrence: None)
  Receive Date: 20061129
  Receipt Date: 20061118
  Transmission Date: 20070319
  Serious: Yes (Hospitalization)
  Sender: FDA-Public Use
  Company Number: 2006143465

PATIENT
  Age: 58 Year
  Sex: Female
  Weight: 79.3795 kg

DRUGS (3)
  1. SUDAFED PE SEVERE COLD CAPLET (DIPHENHYDRAMINE,PHENYLEPHRINE,ACETAMINO [Suspect]
     Indication: COUGH
     Dosage: 2 TABLETS EVERY FOUR HOURS, ORAL
     Route: 048
     Dates: start: 20061101, end: 20061116
  2. SUDAFED PE SEVERE COLD CAPLET (DIPHENHYDRAMINE,PHENYLEPHRINE,ACETAMINO [Suspect]
     Indication: HYPERSENSITIVITY
     Dosage: 2 TABLETS EVERY FOUR HOURS, ORAL
     Route: 048
     Dates: start: 20061101, end: 20061116
  3. SUDAFED PE SEVERE COLD CAPLET (DIPHENHYDRAMINE,PHENYLEPHRINE,ACETAMINO [Suspect]
     Indication: SINUS CONGESTION
     Dosage: 2 TABLETS EVERY FOUR HOURS, ORAL
     Route: 048
     Dates: start: 20061101, end: 20061116

REACTIONS (4)
  - DYSPNOEA [None]
  - PRURITUS [None]
  - THROAT TIGHTNESS [None]
  - URTICARIA GENERALISED [None]
